FAERS Safety Report 14151099 (Version 1)
Quarter: 2017Q4

REPORT INFORMATION
  Report Type: Spontaneous
  Country: US (occurrence: US)
  Receive Date: 20171102
  Receipt Date: 20171102
  Transmission Date: 20180321
  Serious: Yes (Life-Threatening, Other)
  Sender: FDA-Public Use
  Company Number: US-ACCORD-060575

PATIENT
  Age: 75 Year
  Sex: Male
  Weight: 86.8 kg

DRUGS (11)
  1. FENTANYL. [Interacting]
     Active Substance: FENTANYL
     Indication: PAIN
     Route: 040
  2. RIFAXIMIN. [Concomitant]
     Active Substance: RIFAXIMIN
     Indication: HYPERAMMONAEMIA
  3. CEFAZOLIN [Concomitant]
     Active Substance: CEFAZOLIN
  4. INSULIN [Concomitant]
     Active Substance: INSULIN NOS
  5. FAMOTIDINE. [Concomitant]
     Active Substance: FAMOTIDINE
  6. HEPARIN [Concomitant]
     Active Substance: HEPARIN SODIUM
  7. NOREPINEPHRINE. [Concomitant]
     Active Substance: NOREPINEPHRINE
  8. METOCLOPRAMIDE. [Concomitant]
     Active Substance: METOCLOPRAMIDE
  9. DEXMEDETOMIDINE. [Suspect]
     Active Substance: DEXMEDETOMIDINE
     Indication: SEDATION
     Dosage: TITRATED UP TO 0.7 MCG/KG/HOUR
  10. THIAMAZOLE [Concomitant]
     Active Substance: METHIMAZOLE
  11. METOCLOPRAMIDE. [Concomitant]
     Active Substance: METOCLOPRAMIDE
     Route: 040

REACTIONS (2)
  - Drug interaction [Unknown]
  - Bradycardia [Recovered/Resolved]
